FAERS Safety Report 10913824 (Version 3)
Quarter: 2017Q1

REPORT INFORMATION
  Report Type: Spontaneous
  Country: US (occurrence: US)
  Receive Date: 20150313
  Receipt Date: 20170116
  Transmission Date: 20170428
  Serious: Yes (Other)
  Sender: FDA-Public Use
  Company Number: US-JNJFOC-20150301449

PATIENT
  Age: 38 Year
  Sex: Male

DRUGS (2)
  1. RISPERDAL [Suspect]
     Active Substance: RISPERIDONE
     Indication: SCHIZOPHRENIA
     Dosage: 1MG ? 5MG
     Route: 048
     Dates: start: 2008, end: 2011
  2. METFORMIN [Concomitant]
     Active Substance: METFORMIN HYDROCHLORIDE
     Indication: DIABETES MELLITUS
     Route: 048

REACTIONS (6)
  - Hyperprolactinaemia [Unknown]
  - Galactorrhoea [Unknown]
  - Diabetes mellitus [Unknown]
  - Gynaecomastia [Unknown]
  - Drug ineffective [Unknown]
  - Obesity [Unknown]

NARRATIVE: CASE EVENT DATE: 20101022
